FAERS Safety Report 4565019-9 (Version None)
Quarter: 2005Q1

REPORT INFORMATION
  Report Type: 
  Country: None (occurrence: None)
  Receive Date: 20050126
  Receipt Date: 20050113
  Transmission Date: 20050727
  Serious: Yes (Other)
  Sender: FDA-Public Use
  Company Number: 2005017720

PATIENT
  Sex: 0

DRUGS (1)
  1. XALATAN [Suspect]
     Indication: ILL-DEFINED DISORDER
     Dosage: INTRAOCULAR
     Route: 014

REACTIONS (1)
  - CARDIOMEGALY [None]
